FAERS Safety Report 5097132-4 (Version None)
Quarter: 2006Q3

REPORT INFORMATION
  Report Type: 
  Country: None (occurrence: None)
  Receive Date: 20060824
  Receipt Date: 20060808
  Transmission Date: 20061208
  Serious: Yes (Other)
  Sender: FDA-Public Use
  Company Number: PHBS2006FI12142

PATIENT
  Age: 63 Year
  Sex: Female

DRUGS (1)
  1. LAMISILDERMGEL(TERBINAFINE HYDROCHLORIDE) GEL [Suspect]
     Indication: TINEA INFECTION
     Dosage: TOPICAL
     Route: 061
     Dates: start: 20060719

REACTIONS (1)
  - ERYTHEMA MULTIFORME [None]
